FAERS Safety Report 6992955-6 (Version None)
Quarter: 2010Q3

REPORT INFORMATION
  Report Type: 
  Country: None (occurrence: None)
  Receive Date: 20100917
  Receipt Date: 20100511
  Transmission Date: 20110219
  Serious: Yes (Other)
  Sender: FDA-Public Use
  Company Number: US-ASTRAZENECA-2007UW10955

PATIENT
  Age: 18331 Day
  Sex: Male
  Weight: 107 kg

DRUGS (17)
  1. SEROQUEL [Suspect]
     Indication: INSOMNIA
     Route: 048
     Dates: start: 20021125, end: 20050301
  2. SEROQUEL [Suspect]
     Indication: DEPRESSION
     Route: 048
     Dates: start: 20021125, end: 20050301
  3. SEROQUEL [Suspect]
     Route: 048
     Dates: start: 20021223
  4. SEROQUEL [Suspect]
     Route: 048
     Dates: start: 20021223
  5. SEROQUEL [Suspect]
     Dosage: 300 TO 600 MG
     Route: 048
  6. SEROQUEL [Suspect]
     Dosage: 300 TO 600 MG
     Route: 048
  7. ZYPREXA [Concomitant]
     Indication: SUICIDAL IDEATION
     Dates: start: 20050731, end: 20050804
  8. WELLBUTRIN SR [Concomitant]
     Dosage: 150 MG, IN THE A.M. AND 4 P.M
     Dates: start: 20021223
  9. TRILEPTAL [Concomitant]
     Dates: start: 20021223
  10. BENADRYL [Concomitant]
     Dates: start: 20021223
  11. ACCUPRIL [Concomitant]
     Dates: start: 20021223
  12. PREVACID [Concomitant]
     Dates: start: 20021223
  13. DOXYCYCLINE [Concomitant]
     Dates: start: 20021223
  14. CIMETIDINE [Concomitant]
     Dates: start: 20031118
  15. DIAZEPAM [Concomitant]
     Dates: start: 20031118
  16. HYDROCODONE [Concomitant]
     Dates: start: 20031118
  17. METFORMIN [Concomitant]
     Dates: start: 20070101

REACTIONS (6)
  - ABDOMINAL PAIN [None]
  - ABDOMINAL PAIN UPPER [None]
  - MALAISE [None]
  - SUICIDAL IDEATION [None]
  - TYPE 1 DIABETES MELLITUS [None]
  - TYPE 2 DIABETES MELLITUS [None]
